FAERS Safety Report 5299804-5 (Version None)
Quarter: 2007Q2

REPORT INFORMATION
  Report Type: 
  Country: None (occurrence: None)
  Receive Date: 20070417
  Receipt Date: 20070412
  Transmission Date: 20071010
  Serious: Yes (Hospitalization)
  Sender: FDA-Public Use
  Company Number: US-PFIZER INC-2007029434

PATIENT
  Sex: Female

DRUGS (1)
  1. CELEBREX [Suspect]
     Indication: ARTHRITIS

REACTIONS (5)
  - ARTHRITIS [None]
  - CARDIOVASCULAR DISORDER [None]
  - GASTROINTESTINAL DISORDER [None]
  - HYPERTENSION [None]
  - THROMBOSIS [None]
